FAERS Safety Report 7461767-1 (Version None)
Quarter: 2011Q2

REPORT INFORMATION
  Report Type: 
  Country: None (occurrence: None)
  Receive Date: 20110506
  Receipt Date: 20110502
  Transmission Date: 20111010
  Serious: Yes (Other)
  Sender: FDA-Public Use
  Company Number: US-AMGEN-USASP2011022849

PATIENT
  Age: 48 Year
  Sex: Female

DRUGS (6)
  1. INSULIN GLULISINE [Concomitant]
     Dosage: UNK
     Dates: start: 20070325
  2. PROPRANOLOL [Concomitant]
     Dosage: 10 MG, BID
     Route: 048
     Dates: start: 20080101
  3. TACROLIMUS [Concomitant]
     Dosage: 2.5 MG, BID
     Dates: start: 20070101
  4. NPLATE [Suspect]
     Indication: IDIOPATHIC THROMBOCYTOPENIC PURPURA
     Dosage: 90 A?G, UNK
     Route: 058
     Dates: start: 20101116, end: 20101207
  5. LEVOTHYROXINE SODIUM [Concomitant]
     Dosage: 88 A?G, QD
     Route: 048
     Dates: start: 19840325
  6. PREDNISONE [Concomitant]
     Dosage: 5 MG, QD
     Dates: start: 19940325

REACTIONS (3)
  - FATIGUE [None]
  - DYSFUNCTIONAL UTERINE BLEEDING [None]
  - ABDOMINAL PAIN [None]
